FAERS Safety Report 6113054-1 (Version None)
Quarter: 2009Q1

REPORT INFORMATION
  Report Type: 
  Country: None (occurrence: None)
  Receive Date: 20090312
  Receipt Date: 20090302
  Transmission Date: 20090719
  Serious: Yes (Hospitalization)
  Sender: FDA-Public Use
  Company Number: US-KINGPHARMUSA00001-K200900252

PATIENT
  Age: 67 Year
  Sex: Male

DRUGS (10)
  1. SEPTRA [Suspect]
     Indication: STENOTROPHOMONAS INFECTION
     Dosage: UNK
  2. SEPTRA [Suspect]
     Indication: ESCHERICHIA INFECTION
  3. MOXIFLOXACIN HCL [Concomitant]
     Indication: PYREXIA
  4. MOXIFLOXACIN HCL [Concomitant]
     Indication: CHILLS
  5. MOXIFLOXACIN HCL [Concomitant]
     Indication: PAIN
  6. MOXIFLOXACIN HCL [Concomitant]
     Indication: PLEURAL EFFUSION
  7. CIPROFLOXACIN [Concomitant]
     Indication: STENOTROPHOMONAS INFECTION
     Dosage: UNK
  8. CIPROFLOXACIN [Concomitant]
     Indication: ESCHERICHIA INFECTION
  9. TIGECYCLINE [Concomitant]
     Indication: PYREXIA
  10. CEFEPIME [Concomitant]

REACTIONS (5)
  - ACUTE FEBRILE NEUTROPHILIC DERMATOSIS [None]
  - ARTHRALGIA [None]
  - PYREXIA [None]
  - RASH ERYTHEMATOUS [None]
  - RASH VESICULAR [None]
